FAERS Safety Report 22274005 (Version 1)
Quarter: 2023Q2

REPORT INFORMATION
  Report Type: Spontaneous
  Country: CN (occurrence: None)
  Receive Date: 20230502
  Receipt Date: 20230502
  Transmission Date: 20230722
  Serious: Yes (Hospitalization)
  Sender: FDA-Public Use
  Company Number: CN-SUPERNUS Pharmaceuticals, Inc.-SUP202304-001447

PATIENT
  Age: 18 Year
  Sex: Male

DRUGS (5)
  1. OXCARBAZEPINE [Suspect]
     Active Substance: OXCARBAZEPINE
     Indication: Epilepsy
     Route: 048
     Dates: start: 20181005
  2. OXCARBAZEPINE [Suspect]
     Active Substance: OXCARBAZEPINE
     Route: 048
     Dates: start: 20181010
  3. OXCARBAZEPINE [Suspect]
     Active Substance: OXCARBAZEPINE
     Route: 048
     Dates: start: 201810
  4. VALPROATE SODIUM [Concomitant]
     Active Substance: VALPROATE SODIUM
  5. LAMOTRIGINE [Concomitant]
     Active Substance: LAMOTRIGINE

REACTIONS (4)
  - Ventricular extrasystoles [Unknown]
  - Palpitations [Recovered/Resolved]
  - Atrioventricular block [Recovered/Resolved]
  - Inappropriate schedule of product administration [Unknown]

NARRATIVE: CASE EVENT DATE: 20181001
